FAERS Safety Report 13550415 (Version 1)
Quarter: 2017Q2

REPORT INFORMATION
  Report Type: Spontaneous
  Country: MX (occurrence: MX)
  Receive Date: 20170516
  Receipt Date: 20170516
  Transmission Date: 20170830
  Serious: Yes (Other)
  Sender: FDA-Public Use
  Company Number: MX-BAYER-2017-089007

PATIENT
  Sex: Female

DRUGS (1)
  1. NEXAVAR [Suspect]
     Active Substance: SORAFENIB
     Indication: THYROID CANCER
     Dosage: UNK

REACTIONS (2)
  - Toxicity to various agents [Recovering/Resolving]
  - Thyroid cancer [Recovered/Resolved]
